FAERS Safety Report 7399434-5 (Version None)
Quarter: 2011Q2

REPORT INFORMATION
  Report Type: 
  Country: None (occurrence: None)
  Receive Date: 20110407
  Receipt Date: 20110328
  Transmission Date: 20111010
  Serious: Yes (Hospitalization, Other)
  Sender: FDA-Public Use
  Company Number: PHFR2010IE04461

PATIENT
  Sex: Male

DRUGS (6)
  1. DIAZEPAM [Concomitant]
  2. CLOZARIL [Suspect]
     Indication: SCHIZOPHRENIA
     Dosage: UNK
     Route: 048
     Dates: start: 20100916, end: 20101013
  3. CLOZARIL [Suspect]
     Dosage: UNK
     Route: 048
     Dates: start: 20101021
  4. AGOMELATINE [Concomitant]
  5. EPILIM [Concomitant]
  6. LITHIUM [Concomitant]

REACTIONS (7)
  - INFECTION [None]
  - BLOOD PRESSURE INCREASED [None]
  - HEADACHE [None]
  - HEART RATE INCREASED [None]
  - PUPILLARY REFLEX IMPAIRED [None]
  - EYE DISORDER [None]
  - EOSINOPHIL COUNT INCREASED [None]
